FAERS Safety Report 22148012 (Version 1)
Quarter: 2023Q1

REPORT INFORMATION
  Report Type: Spontaneous
  Country: JP (occurrence: JP)
  Receive Date: 20230328
  Receipt Date: 20230328
  Transmission Date: 20230418
  Serious: Yes (Hospitalization)
  Sender: FDA-Public Use
  Company Number: JP-DSJP-DSJ-2023-111452

PATIENT
  Age: 73 Year
  Sex: Male

DRUGS (1)
  1. EDOXABAN TOSYLATE [Suspect]
     Active Substance: EDOXABAN TOSYLATE
     Indication: Atrial flutter
     Dosage: UNK
     Route: 048

REACTIONS (5)
  - Shock haemorrhagic [Unknown]
  - Abdominal compartment syndrome [Unknown]
  - Aneurysm ruptured [Unknown]
  - Endocarditis [Recovering/Resolving]
  - Intra-abdominal haemorrhage [Recovering/Resolving]
